FAERS Safety Report 6218981-2 (Version None)
Quarter: 2009Q2

REPORT INFORMATION
  Report Type: 
  Country: None (occurrence: None)
  Receive Date: 20090608
  Receipt Date: 20090601
  Transmission Date: 20091009
  Serious: Yes (Other)
  Sender: FDA-Public Use
  Company Number: PHHY2009BR21787

PATIENT
  Sex: Female
  Weight: 67 kg

DRUGS (2)
  1. FORASEQ [Suspect]
     Indication: ASTHMA
     Dosage: UNK
  2. CLENIL [Concomitant]

REACTIONS (5)
  - CHOLELITHIASIS [None]
  - DEVICE MALFUNCTION [None]
  - DYSPNOEA [None]
  - FATIGUE [None]
  - GALLBLADDER OPERATION [None]
